FAERS Safety Report 7362275-9 (Version None)
Quarter: 2011Q1

REPORT INFORMATION
  Report Type: 
  Country: None (occurrence: None)
  Receive Date: 20110318
  Receipt Date: 20110221
  Transmission Date: 20110831
  Serious: No
  Sender: FDA-Public Use
  Company Number: US-B.I. PHARMACEUTICALS,INC./RIDGEFIELD-2011-BP-00872BP

PATIENT
  Sex: Female
  Weight: 50 kg

DRUGS (18)
  1. PRADAXA [Suspect]
     Indication: ATRIAL FIBRILLATION
     Dosage: 300 MG
     Dates: start: 20110103
  2. SINGULAIR [Concomitant]
     Dosage: 10 MG
     Route: 048
  3. WARFARIN SODIUM [Concomitant]
     Route: 048
  4. CEFDINIR [Concomitant]
     Dosage: 600 MG
     Route: 048
  5. FUROSEMIDE [Concomitant]
     Route: 048
  6. LIPITOR [Concomitant]
     Dosage: 40 MG
     Route: 048
  7. ZOLPIDEM [Concomitant]
     Indication: SLEEP DISORDER
     Route: 048
  8. ADVAIR DISKUS 100/50 [Concomitant]
     Route: 055
  9. SPIRIVA [Concomitant]
     Dosage: 18 MCG
     Route: 055
  10. IPRAT/ALBUTEROL [Concomitant]
     Route: 055
  11. AMLODIPINE [Concomitant]
     Route: 048
  12. LANOXIN [Concomitant]
     Dosage: 0.125 MG
  13. CEFADROXIL [Concomitant]
     Dosage: 1000 MG
     Route: 048
  14. DESOXIMETASONE [Concomitant]
     Route: 061
  15. LEVOTHYROXINE SODIUM [Concomitant]
     Dosage: 0.125 MG
     Route: 048
  16. POTASSIUM CHLORIDE [Concomitant]
     Route: 048
  17. LOTREL [Concomitant]
  18. PRADAXA [Suspect]
     Indication: HEART VALVE REPLACEMENT

REACTIONS (3)
  - RECTAL HAEMORRHAGE [None]
  - CRYING [None]
  - MEDICATION RESIDUE [None]
